FAERS Safety Report 7775596-2 (Version None)
Quarter: 2011Q3

REPORT INFORMATION
  Report Type: 
  Country: None (occurrence: None)
  Receive Date: 20110923
  Receipt Date: 20110919
  Transmission Date: 20111222
  Serious: Yes (Death)
  Sender: FDA-Public Use
  Company Number: KR-GENENTECH-324653

PATIENT

DRUGS (1)
  1. RITUXIMAB [Suspect]
     Indication: PEMPHIGUS
     Dosage: 375 MG/M2, 1/WEEK

REACTIONS (1)
  - GASTRIC PERFORATION [None]
